FAERS Safety Report 21896647 (Version 1)
Quarter: 2023Q1

REPORT INFORMATION
  Report Type: Spontaneous
  Country: GB (occurrence: GB)
  Receive Date: 20230123
  Receipt Date: 20230123
  Transmission Date: 20230418
  Serious: Yes (Other)
  Sender: FDA-Public Use
  Company Number: GB-AUROBINDO-AUR-APL-2023-001787

PATIENT
  Age: 68 Year
  Sex: Male
  Weight: 95 kg

DRUGS (1)
  1. ISOSORBIDE MONONITRATE [Suspect]
     Active Substance: ISOSORBIDE MONONITRATE
     Indication: Angina pectoris
     Dosage: 30 MILLIGRAM
     Route: 065
     Dates: start: 20230107

REACTIONS (7)
  - Chest pain [Not Recovered/Not Resolved]
  - Headache [Unknown]
  - Neck pain [Unknown]
  - Arthralgia [Unknown]
  - Back pain [Unknown]
  - Abdominal pain upper [Unknown]
  - Myalgia [Unknown]

NARRATIVE: CASE EVENT DATE: 20230107
